FAERS Safety Report 24422928 (Version 5)
Quarter: 2025Q4

REPORT INFORMATION
  Report Type: Spontaneous
  Country: JP (occurrence: JP)
  Receive Date: 20241010
  Receipt Date: 20251224
  Transmission Date: 20260117
  Serious: No
  Sender: PFIZER
  Company Number: JP-PFIZER INC-PV202400129547

PATIENT
  Sex: Male

DRUGS (1)
  1. NGENLA [Suspect]
     Active Substance: SOMATROGON-GHLA
     Dosage: ONCE A WEEK
     Route: 058

REACTIONS (3)
  - Patient-device incompatibility [Unknown]
  - Injection site pain [Unknown]
  - Depressed mood [Unknown]
